FAERS Safety Report 4885182-X (Version None)
Quarter: 2005Q4

REPORT INFORMATION
  Report Type: 
  Country: None (occurrence: None)
  Receive Date: 20051201
  Receipt Date: 20050901
  Transmission Date: 20060501
  Serious: No
  Sender: FDA-Public Use
  Company Number: 2005PV001826

PATIENT
  Age: 53 Year
  Sex: Female
  Weight: 97.977 kg

DRUGS (21)
  1. BYETTA [Suspect]
     Indication: DIABETES MELLITUS NON-INSULIN-DEPENDENT
     Dosage: SEE IMAGE
     Route: 058
     Dates: start: 20050624, end: 20050724
  2. BYETTA [Suspect]
     Indication: DIABETES MELLITUS NON-INSULIN-DEPENDENT
     Dosage: SEE IMAGE
     Route: 058
     Dates: start: 20050724, end: 20050724
  3. BYETTA [Suspect]
     Indication: DIABETES MELLITUS NON-INSULIN-DEPENDENT
     Dosage: SEE IMAGE
     Route: 058
     Dates: start: 20050724, end: 20050824
  4. BYETTA [Suspect]
     Indication: DIABETES MELLITUS NON-INSULIN-DEPENDENT
     Dosage: SEE IMAGE
     Route: 058
     Dates: start: 20050824, end: 20050830
  5. BYETTA [Suspect]
     Indication: DIABETES MELLITUS NON-INSULIN-DEPENDENT
     Dosage: SEE IMAGE
     Route: 058
     Dates: start: 20050830, end: 20050830
  6. BYETTA [Suspect]
     Indication: DIABETES MELLITUS NON-INSULIN-DEPENDENT
     Dosage: SEE IMAGE
     Route: 058
     Dates: start: 20050830
  7. GLUCOPHAGE [Concomitant]
  8. VITAMINS [Concomitant]
  9. IRON [Concomitant]
  10. ALTACE [Concomitant]
  11. VITAMIN B-12 [Concomitant]
  12. CYMBALTA [Concomitant]
  13. EFFEXOR [Concomitant]
  14. LEVOXYL [Concomitant]
  15. LIPITOR [Concomitant]
  16. MIRALAX [Concomitant]
  17. MOBIC [Concomitant]
  18. NEXIUM [Concomitant]
  19. TRICOR [Concomitant]
  20. WELLBUTRIN XL [Concomitant]
  21. ZELNORM [Concomitant]

REACTIONS (4)
  - DECREASED APPETITE [None]
  - NAUSEA [None]
  - VOMITING [None]
  - WEIGHT DECREASED [None]
